FAERS Safety Report 9122690 (Version 1)
Quarter: 2013Q1

REPORT INFORMATION
  Report Type: Spontaneous
  Country: US (occurrence: None)
  Receive Date: 20130225
  Receipt Date: 20130225
  Transmission Date: 20140127
  Serious: Yes (Hospitalization)
  Sender: FDA-Public Use
  Company Number: None

PATIENT
  Age: 70 Year
  Sex: Male
  Weight: 96.6 kg

DRUGS (1)
  1. XARELTO 20MG JANSSEN [Suspect]
     Indication: ATRIAL FIBRILLATION
     Dosage: 20MG  DAILY  PO
     Route: 048

REACTIONS (2)
  - Retroperitoneal haemorrhage [None]
  - Renal haematoma [None]
